FAERS Safety Report 24915979 (Version 1)
Quarter: 2025Q1

REPORT INFORMATION
  Report Type: Spontaneous
  Country: US (occurrence: US)
  Receive Date: 20250203
  Receipt Date: 20250203
  Transmission Date: 20250408
  Serious: No
  Sender: ACCORD
  Company Number: US-Accord-437418

PATIENT
  Age: 39 Year
  Sex: Female

DRUGS (12)
  1. BUSPIRONE [Interacting]
     Active Substance: BUSPIRONE HYDROCHLORIDE
     Indication: Anxiety
     Dates: end: 2024
  2. SODIUM OXYBATE [Interacting]
     Active Substance: SODIUM OXYBATE
     Indication: Narcolepsy
     Route: 048
     Dates: start: 202402, end: 2024
  3. ALPRAZOLAM [Suspect]
     Active Substance: ALPRAZOLAM
     Indication: Anxiety
     Dates: start: 2024
  4. PITOLISANT [Suspect]
     Active Substance: PITOLISANT
     Indication: Product used for unknown indication
     Dates: start: 2024, end: 2024
  5. SERTRALINE [Concomitant]
     Active Substance: SERTRALINE HYDROCHLORIDE
  6. ADDERALL [Concomitant]
     Active Substance: AMPHETAMINE ASPARTATE\AMPHETAMINE SULFATE\DEXTROAMPHETAMINE SACCHARATE\DEXTROAMPHETAMINE SULFATE
  7. BUSPIRONE [Interacting]
     Active Substance: BUSPIRONE HYDROCHLORIDE
     Indication: Anxiety
     Dates: start: 2024, end: 2024
  8. SODIUM OXYBATE [Interacting]
     Active Substance: SODIUM OXYBATE
     Indication: Narcolepsy
     Route: 048
     Dates: start: 2024, end: 2024
  9. SODIUM OXYBATE [Interacting]
     Active Substance: SODIUM OXYBATE
     Indication: Narcolepsy
     Route: 048
     Dates: start: 2024, end: 20240509
  10. SODIUM OXYBATE [Interacting]
     Active Substance: SODIUM OXYBATE
     Indication: Narcolepsy
     Route: 048
     Dates: start: 20240510, end: 2024
  11. BUSPIRONE [Interacting]
     Active Substance: BUSPIRONE HYDROCHLORIDE
     Indication: Anxiety
     Dates: start: 2024, end: 2024
  12. PITOLISANT [Suspect]
     Active Substance: PITOLISANT
     Indication: Product used for unknown indication
     Dates: start: 2024, end: 2024

REACTIONS (8)
  - Lethargy [Unknown]
  - Depression [Unknown]
  - Panic attack [Not Recovered/Not Resolved]
  - Disturbance in attention [Not Recovered/Not Resolved]
  - Anxiety [Not Recovered/Not Resolved]
  - Drug interaction [Unknown]
  - Drug ineffective [Unknown]
  - Malaise [Unknown]

NARRATIVE: CASE EVENT DATE: 20240101
